FAERS Safety Report 16122260 (Version 1)
Quarter: 2019Q1

REPORT INFORMATION
  Report Type: Spontaneous
  Country: GB (occurrence: GB)
  Receive Date: 20190327
  Receipt Date: 20190327
  Transmission Date: 20190418
  Serious: Yes (Other)
  Sender: FDA-Public Use
  Company Number: GB-ACCORD-116161

PATIENT
  Age: 74 Year
  Sex: Female
  Weight: 65 kg

DRUGS (6)
  1. SALBUTAMOL [Concomitant]
     Active Substance: ALBUTEROL
     Dosage: PUFFS AS DIRECTED.
     Dates: start: 20170627
  2. ATORVASTATIN/ATORVASTATIN CALCIUM [Suspect]
     Active Substance: ATORVASTATIN CALCIUM
     Indication: PRODUCT USED FOR UNKNOWN INDICATION
     Dates: start: 20180110
  3. VENLALIC XL [Concomitant]
     Active Substance: VENLAFAXINE HYDROCHLORIDE
     Dates: start: 20170627
  4. SIMVASTATIN. [Suspect]
     Active Substance: SIMVASTATIN
     Indication: HYPERCHOLESTEROLAEMIA
     Dosage: AT NIGHT.
     Dates: start: 20171116
  5. CLENIL MODULITE [Concomitant]
     Active Substance: BECLOMETHASONE DIPROPIONATE
     Dosage: PUFFS.
     Dates: start: 20170627
  6. CLOPIDOGREL [Concomitant]
     Active Substance: CLOPIDOGREL BISULFATE
     Indication: CEREBROVASCULAR ACCIDENT PROPHYLAXIS
     Dates: start: 20171116

REACTIONS (1)
  - Depressed mood [Unknown]

NARRATIVE: CASE EVENT DATE: 20180110
